FAERS Safety Report 4569014-5 (Version None)
Quarter: 2005Q1

REPORT INFORMATION
  Report Type: 
  Country: None (occurrence: None)
  Receive Date: 20050203
  Receipt Date: 20041220
  Transmission Date: 20050727
  Serious: Yes (Hospitalization)
  Sender: FDA-Public Use
  Company Number: 200413985JP

PATIENT
  Age: 50 Year
  Sex: Male
  Weight: 65 kg

DRUGS (8)
  1. KETEK [Suspect]
     Indication: NASOPHARYNGITIS
     Route: 048
     Dates: start: 20041213, end: 20041213
  2. RYTHMODAN - SLOW RELEASE [Suspect]
     Indication: ATRIAL FIBRILLATION
     Route: 048
     Dates: end: 20041213
  3. DIGITOXIN TAB [Suspect]
     Indication: CARDIAC OPERATION
     Route: 048
     Dates: end: 20041213
  4. DIGITOXIN TAB [Suspect]
     Indication: POSTOPERATIVE CARE
     Route: 048
     Dates: end: 20041213
  5. VASOLAN [Suspect]
     Indication: ATRIAL FIBRILLATION
     Route: 048
     Dates: end: 20041213
  6. ARTIST [Suspect]
     Indication: ATRIAL FIBRILLATION
     Route: 048
     Dates: end: 20041213
  7. ASPIRIN [Concomitant]
     Route: 048
     Dates: start: 20041216, end: 20041213
  8. NEUQUINON [Concomitant]
     Route: 048
     Dates: end: 20041213

REACTIONS (3)
  - CARDIOACTIVE DRUG LEVEL INCREASED [None]
  - DRUG INTERACTION [None]
  - SINUS BRADYCARDIA [None]
